FAERS Safety Report 7841448-2 (Version None)
Quarter: 2011Q4

REPORT INFORMATION
  Report Type: 
  Country: None (occurrence: None)
  Receive Date: 20111025
  Receipt Date: 20111015
  Transmission Date: 20120403
  Serious: Yes (Other)
  Sender: FDA-Public Use
  Company Number: CA-JNJFOC-20111007940

PATIENT
  Sex: Female
  Weight: 47 kg

DRUGS (12)
  1. OMEPRAZOLE [Concomitant]
     Route: 065
  2. LOPERAMIDE HCL [Concomitant]
     Route: 065
  3. HYDROCORTISONE [Concomitant]
     Indication: PREMEDICATION
     Route: 065
  4. MIRTAZAPINE [Concomitant]
     Route: 065
  5. CODEINE SULFATE [Concomitant]
     Route: 065
  6. RAMIPRIL [Concomitant]
     Route: 065
  7. BUDESONIDE [Concomitant]
     Route: 065
  8. BISOPROLOL [Concomitant]
     Route: 065
  9. BENADRYL [Concomitant]
     Indication: PREMEDICATION
     Route: 065
  10. REMICADE [Suspect]
     Indication: CROHN'S DISEASE
     Route: 042
  11. FUROSEMIDE [Concomitant]
     Route: 065
  12. ACTONEL [Concomitant]
     Route: 065

REACTIONS (5)
  - PALPITATIONS [None]
  - DYSPNOEA [None]
  - INFUSION RELATED REACTION [None]
  - PANIC ATTACK [None]
  - CHEST PAIN [None]
